FAERS Safety Report 5497058-8 (Version None)
Quarter: 2007Q4

REPORT INFORMATION
  Report Type: 
  Country: None (occurrence: None)
  Receive Date: 20071025
  Receipt Date: 20071017
  Transmission Date: 20080405
  Serious: Yes (Other)
  Sender: FDA-Public Use
  Company Number: BR-ROCHE-482479

PATIENT
  Age: 32 Year
  Sex: Female

DRUGS (2)
  1. ISOTRETINOIN [Suspect]
     Indication: ACNE
     Route: 048
     Dates: start: 20060329, end: 20061015
  2. UNSPECIFIED DRUG [Concomitant]
     Indication: CONTRACEPTION
     Dates: end: 20061217

REACTIONS (2)
  - NO ADVERSE REACTION [None]
  - PREGNANCY [None]
